FAERS Safety Report 25525026 (Version 1)
Quarter: 2025Q3

REPORT INFORMATION
  Report Type: Spontaneous
  Country: US (occurrence: None)
  Receive Date: 20250705
  Receipt Date: 20250705
  Transmission Date: 20251021
  Serious: Yes (Other)
  Sender: FDA-CTU
  Company Number: None

PATIENT
  Age: 81 Year
  Sex: Female
  Weight: 82.8 kg

DRUGS (1)
  1. RECLAST [Suspect]
     Active Substance: ZOLEDRONIC ACID
     Indication: Osteoporosis
     Dates: start: 20250626, end: 20250626

REACTIONS (4)
  - Back pain [None]
  - Bone pain [None]
  - Chills [None]
  - Fatigue [None]

NARRATIVE: CASE EVENT DATE: 20250627
